FAERS Safety Report 5630636-1 (Version None)
Quarter: 2008Q1

REPORT INFORMATION
  Report Type: 
  Country: None (occurrence: None)
  Receive Date: 20080213
  Receipt Date: 20080204
  Transmission Date: 20080703
  Serious: Yes (Death)
  Sender: FDA-Public Use
  Company Number: 2008-01028

PATIENT
  Age: 54 Year
  Sex: Female

DRUGS (9)
  1. DOXEPIN HCL [Suspect]
  2. FLURAZEPAM [Suspect]
  3. FIORICET [Suspect]
  4. CITALOPRAM HYDROBROMIDE [Suspect]
  5. TRAZODONE HYDROCHLORIDE [Suspect]
  6. FLUOXETINE [Suspect]
  7. DULOXETINE() [Suspect]
  8. MONTELUKAST SODIUM [Suspect]
  9. FENOFIBRATE [Suspect]

REACTIONS (1)
  - CARDIO-RESPIRATORY ARREST [None]
